FAERS Safety Report 10291774 (Version 2)
Quarter: 2014Q3

REPORT INFORMATION
  Report Type: Spontaneous
  Country: US (occurrence: US)
  Receive Date: 20140710
  Receipt Date: 20140710
  Transmission Date: 20150326
  Serious: No
  Sender: FDA-Public Use
  Company Number: US-PURDUE-USA-2013-0105753

PATIENT
  Age: 37 Year
  Sex: Female
  Weight: 51.7 kg

DRUGS (1)
  1. BUTRANS [Suspect]
     Active Substance: BUPRENORPHINE
     Indication: PAIN
     Dosage: 10 MCG/HR, WEEKLY
     Route: 062
     Dates: start: 20130611, end: 20130904

REACTIONS (7)
  - Application site exfoliation [Recovered/Resolved]
  - Drug effect increased [Unknown]
  - Device leakage [Unknown]
  - Nausea [Unknown]
  - Application site burn [None]
  - Application site erythema [Recovered/Resolved]
  - Application site scab [Recovered/Resolved]
